FAERS Safety Report 9714282 (Version 3)
Quarter: 2015Q3

REPORT INFORMATION
  Report Type: Spontaneous
  Country: US (occurrence: US)
  Receive Date: 20131126
  Receipt Date: 20150803
  Transmission Date: 20151125
  Serious: No
  Sender: FDA-Public Use
  Company Number: US-GILEAD-2008-0018245

PATIENT
  Age: 71 Year
  Sex: Female
  Weight: 61.23 kg

DRUGS (13)
  1. CALCIUM [Concomitant]
     Active Substance: CALCIUM
     Dosage: AS DIRECTED
     Route: 048
  2. FLAXSEED [Concomitant]
     Active Substance: FLAX SEED
     Dosage: AS DIRECTED
     Route: 048
  3. LETAIRIS [Suspect]
     Active Substance: AMBRISENTAN
     Indication: PULMONARY ARTERIAL HYPERTENSION
     Route: 048
     Dates: start: 20080910
  4. ZOCOR [Concomitant]
     Active Substance: SIMVASTATIN
     Dosage: AS DIRECTED
     Route: 048
  5. LEVOTHYROXINE. [Concomitant]
     Active Substance: LEVOTHYROXINE
     Dosage: AS DIRECTED
     Route: 048
  6. PROCARDIA XL [Concomitant]
     Active Substance: NIFEDIPINE
     Dosage: AS DIRECTED
     Route: 048
  7. VIAGRA [Concomitant]
     Active Substance: SILDENAFIL CITRATE
     Dosage: AS DIRECTED
     Route: 048
  8. VITAMIN D [Concomitant]
     Active Substance: CHOLECALCIFEROL
     Dosage: AS DIRECTED
     Route: 048
  9. MULTIVITAMIN [Concomitant]
     Active Substance: VITAMINS
     Dosage: AS DIRECTED
  10. AMBIEN [Concomitant]
     Active Substance: ZOLPIDEM TARTRATE
     Dosage: AS DIRECTED
     Route: 048
  11. LEXAPRO [Concomitant]
     Active Substance: ESCITALOPRAM OXALATE
     Dosage: AS DIRECTED
     Route: 048
  12. VITAMIN C [Concomitant]
     Active Substance: ASCORBIC ACID
     Dosage: AS DIRECTED
     Route: 048
  13. VITAMIN B12 [Concomitant]
     Active Substance: CYANOCOBALAMIN
     Dosage: AS DIRECTED
     Route: 048

REACTIONS (2)
  - Constipation [Unknown]
  - Faeces discoloured [Unknown]
